FAERS Safety Report 7227845-7 (Version None)
Quarter: 2011Q1

REPORT INFORMATION
  Report Type: 
  Country: None (occurrence: None)
  Receive Date: 20110114
  Receipt Date: 20101215
  Transmission Date: 20110831
  Serious: No
  Sender: FDA-Public Use
  Company Number: US-JNJFOC-20100908050

PATIENT
  Sex: Female
  Weight: 123.38 kg

DRUGS (9)
  1. PROZAC [Concomitant]
     Dosage: HOUR SLEEP
  2. COLESTID [Concomitant]
  3. ACIPHEX [Concomitant]
     Dosage: HOUR SLEEP
  4. LOMOTIL [Concomitant]
     Dosage: 6 TABLETS DAILY
  5. PREMPRO [Concomitant]
     Dosage: 0.3/1.5 MG HOUR SLEEP
  6. ASPIRIN [Concomitant]
     Dosage: HOUR SLEEP
  7. INVEGA [Suspect]
     Indication: ILL-DEFINED DISORDER
     Route: 048
  8. IMIPRAMINE HCL [Concomitant]
     Dosage: HOUR SLEEP
  9. LOVASTATIN [Concomitant]
     Dosage: HOUR SLEEP

REACTIONS (4)
  - DYSPNOEA [None]
  - FATIGUE [None]
  - GAIT DISTURBANCE [None]
  - INCONTINENCE [None]
